FAERS Safety Report 15667391 (Version 2)
Quarter: 2022Q3

REPORT INFORMATION
  Report Type: Spontaneous
  Country: US (occurrence: US)
  Receive Date: 20181128
  Receipt Date: 20220817
  Transmission Date: 20221027
  Serious: No
  Sender: FDA-Public Use
  Company Number: US-PFIZER INC-2018478559

PATIENT
  Age: 19 Year
  Sex: Male

DRUGS (1)
  1. SOMATROPIN [Suspect]
     Active Substance: SOMATROPIN
     Dosage: 1.8 MG, ALTERNATE DAY (EVERY OTHER DAY)

REACTIONS (8)
  - Device breakage [Unknown]
  - Product dose omission issue [Unknown]
  - Product use issue [Unknown]
  - Fatigue [Unknown]
  - Alanine aminotransferase increased [Not Recovered/Not Resolved]
  - Insulin-like growth factor decreased [Unknown]
  - Aspartate aminotransferase increased [Unknown]
  - Glycosylated haemoglobin increased [Unknown]

NARRATIVE: CASE EVENT DATE: 20180101
